FAERS Safety Report 13410107 (Version 2)
Quarter: 2025Q4

REPORT INFORMATION
  Report Type: Report from Study
  Country: EU (occurrence: None)
  Receive Date: 20170406
  Receipt Date: 20251202
  Transmission Date: 20260117
  Serious: Yes (Life-Threatening, Other)
  Sender: AUROBINDO
  Company Number: EU-AUROBINDO-AUR-APL-2017-32149

PATIENT
  Age: 53 Year
  Sex: Female

DRUGS (3)
  1. RIBAVIRIN [Interacting]
     Active Substance: RIBAVIRIN
     Indication: Hepatitis C
     Dosage: 800 MILLIGRAM, ONCE A DAY
     Route: 065
  2. SOFOSBUVIR [Interacting]
     Active Substance: SOFOSBUVIR
     Indication: Hepatitis C
     Dosage: 400 MILLIGRAM, ONCE A DAY
     Route: 065
  3. SIMEPREVIR [Interacting]
     Active Substance: SIMEPREVIR
     Indication: Hepatitis C
     Dosage: 150 MILLIGRAM, ONCE A DAY, 150 MG, UNK
     Route: 065

REACTIONS (5)
  - Haematotoxicity [Recovered/Resolved]
  - Myelosuppression [Recovering/Resolving]
  - Pancytopenia [Recovered/Resolved]
  - Haemolytic anaemia [Recovered/Resolved]
  - Drug interaction [Recovering/Resolving]
